FAERS Safety Report 6265164-6 (Version None)
Quarter: 2009Q3

REPORT INFORMATION
  Report Type: 
  Country: None (occurrence: None)
  Receive Date: 20090713
  Receipt Date: 20090702
  Transmission Date: 20100115
  Serious: Yes (Other)
  Sender: FDA-Public Use
  Company Number: PHHY2009FR27036

PATIENT
  Age: 55 Year
  Sex: Male

DRUGS (5)
  1. ZOMETA [Suspect]
     Indication: LUNG CANCER METASTATIC
     Dosage: 4 MG, QMO
     Dates: start: 20090701
  2. ZOMETA [Suspect]
     Dosage: 4 MG
     Dates: start: 20090702, end: 20090702
  3. CARBOPLATIN [Concomitant]
  4. VP-16 [Concomitant]
  5. CALCIUM [Concomitant]
     Route: 042

REACTIONS (1)
  - ACCIDENTAL OVERDOSE [None]
